FAERS Safety Report 10062994 (Version 1)
Quarter: 2014Q2

REPORT INFORMATION
  Report Type: Spontaneous
  Country: DE (occurrence: DE)
  Receive Date: 20140407
  Receipt Date: 20140407
  Transmission Date: 20141212
  Serious: Yes (Hospitalization)
  Sender: FDA-Public Use
  Company Number: DE-BRISTOL-MYERS SQUIBB COMPANY-20589487

PATIENT
  Age: 17 Year
  Sex: Female

DRUGS (1)
  1. ABILIFY TABS 15 MG [Suspect]
     Indication: PSYCHOTIC DISORDER
     Dosage: ADJUSTED TO 10MG,15MG THEN TO 20MG?TABS?JAN-14 : 10MG
     Dates: start: 201306

REACTIONS (5)
  - Thinking abnormal [Recovering/Resolving]
  - Disturbance in attention [Recovering/Resolving]
  - Motor dysfunction [Recovering/Resolving]
  - Drug level increased [Unknown]
  - Off label use [Unknown]
